FAERS Safety Report 7398911-0 (Version None)
Quarter: 2011Q2

REPORT INFORMATION
  Report Type: 
  Country: None (occurrence: None)
  Receive Date: 20110407
  Receipt Date: 20110401
  Transmission Date: 20111010
  Serious: Yes (Hospitalization, Other)
  Sender: FDA-Public Use
  Company Number: BR-ABBOTT-11P-020-0715933-00

PATIENT
  Sex: Male
  Weight: 64.5 kg

DRUGS (4)
  1. HUMIRA [Suspect]
  2. ENALAPRIL MALEATE [Concomitant]
     Indication: HYPERTENSION
     Route: 048
     Dates: start: 20060101
  3. AMLODIPINE [Concomitant]
     Indication: BLOOD PRESSURE ABNORMAL
     Route: 048
     Dates: start: 20060101
  4. HUMIRA [Suspect]
     Indication: RHEUMATOID ARTHRITIS
     Route: 058
     Dates: start: 20100701, end: 20110224

REACTIONS (6)
  - ANKLE OPERATION [None]
  - OSTEOARTHRITIS [None]
  - DRUG INEFFECTIVE [None]
  - SYNOVIAL CYST [None]
  - CHONDROMATOSIS [None]
  - PERIODONTAL DISEASE [None]
